FAERS Safety Report 4506813-X (Version None)
Quarter: 2004Q4

REPORT INFORMATION
  Report Type: 
  Country: None (occurrence: None)
  Receive Date: 20041122
  Receipt Date: 20040922
  Transmission Date: 20050328
  Serious: Yes (Other)
  Sender: FDA-Public Use
  Company Number: JP-GLAXOSMITHKLINE-B0346370A

PATIENT
  Age: 54 Year
  Sex: Male

DRUGS (2)
  1. IMIGRAN [Suspect]
     Indication: MIGRAINE
     Dosage: 3MG PER DAY
     Route: 058
     Dates: start: 20040910, end: 20040910
  2. VOLTAREN [Suspect]
     Indication: MIGRAINE
     Dosage: 25MG PER DAY
     Route: 048
     Dates: start: 20040910, end: 20040910

REACTIONS (6)
  - ANAPHYLACTOID REACTION [None]
  - ERYTHEMA [None]
  - EYELID OEDEMA [None]
  - FACE OEDEMA [None]
  - SKIN LESION [None]
  - URTICARIA [None]
